FAERS Safety Report 15412401 (Version 12)
Quarter: 2020Q3

REPORT INFORMATION
  Report Type: Report from Study
  Country: CN (occurrence: CN)
  Receive Date: 20180921
  Receipt Date: 20200715
  Transmission Date: 20201102
  Serious: Yes (Hospitalization)
  Sender: FDA-Public Use
  Company Number: CN-ROCHE-2184196

PATIENT
  Age: 44 Year
  Sex: Female
  Weight: 61 kg

DRUGS (86)
  1. DEXAMETHASONE ACETATE [Concomitant]
     Active Substance: DEXAMETHASONE ACETATE
     Route: 048
     Dates: start: 20180729, end: 20180730
  2. AMIFOSTINE. [Concomitant]
     Active Substance: AMIFOSTINE
     Dates: start: 20180821, end: 20180821
  3. AMIFOSTINE. [Concomitant]
     Active Substance: AMIFOSTINE
     Dates: start: 20181030, end: 20181030
  4. AMIFOSTINE. [Concomitant]
     Active Substance: AMIFOSTINE
     Dates: start: 20181120, end: 20181120
  5. POTASSIUM CHLORIDE. [Concomitant]
     Active Substance: POTASSIUM CHLORIDE
     Dates: start: 20180730, end: 20180730
  6. POTASSIUM CHLORIDE. [Concomitant]
     Active Substance: POTASSIUM CHLORIDE
     Dates: start: 20180918, end: 20180918
  7. POTASSIUM CHLORIDE. [Concomitant]
     Active Substance: POTASSIUM CHLORIDE
     Dates: start: 20181217, end: 20181217
  8. ESTAZOLAM. [Concomitant]
     Active Substance: ESTAZOLAM
     Dates: start: 20180731, end: 20180731
  9. AMIKACIN SULFATE. [Concomitant]
     Active Substance: AMIKACIN SULFATE
     Indication: MOUTH ULCERATION
     Dates: start: 20180915, end: 20180915
  10. LANSOPRAZOLE. [Concomitant]
     Active Substance: LANSOPRAZOLE
     Dates: start: 20180821, end: 20180821
  11. LANSOPRAZOLE. [Concomitant]
     Active Substance: LANSOPRAZOLE
     Dates: start: 20181030, end: 20181030
  12. LANSOPRAZOLE. [Concomitant]
     Active Substance: LANSOPRAZOLE
     Dates: start: 20190403, end: 20190403
  13. ESTAZOLAM. [Concomitant]
     Active Substance: ESTAZOLAM
     Dates: start: 20190103, end: 20190103
  14. ESTAZOLAM. [Concomitant]
     Active Substance: ESTAZOLAM
     Dates: start: 20190213, end: 20190213
  15. LIDOCAINE HYDROCHLORIDE. [Concomitant]
     Active Substance: LIDOCAINE HYDROCHLORIDE
     Indication: MOUTH ULCERATION
     Dates: start: 20180915, end: 20180915
  16. MEGLUMINE ADENOSINE CYCLOPHOSPHATE [Concomitant]
     Active Substance: ADENOSINE CYCLIC PHOSPHATE MEGLUMINE
     Indication: ARRHYTHMIA
     Dates: start: 20181217, end: 20181217
  17. DAPHNIPHYLLUM CALYCINUM [Concomitant]
     Indication: INTESTINAL OBSTRUCTION
     Dates: start: 20181217, end: 20181219
  18. BEVACIZUMAB. [Suspect]
     Active Substance: BEVACIZUMAB
     Indication: OVARIAN CANCER
     Dosage: DATE OF MOST RECENT DOSE OF BEVACIZUMAB OF 967.5 MG PRIOR TO AE ONSET 21/AUG/2018?ON 20/NOV/2018, RE
     Route: 042
     Dates: start: 20180730
  19. AMIFOSTINE. [Concomitant]
     Active Substance: AMIFOSTINE
     Dates: start: 20181009, end: 20181009
  20. POTASSIUM CHLORIDE. [Concomitant]
     Active Substance: POTASSIUM CHLORIDE
     Dates: start: 20181009, end: 20181009
  21. POTASSIUM CHLORIDE. [Concomitant]
     Active Substance: POTASSIUM CHLORIDE
     Dates: start: 20181030, end: 20181030
  22. AZASETRON HYDROCHLORIDE [Concomitant]
     Active Substance: AZASETRON HYDROCHLORIDE
     Dates: start: 20180918, end: 20180918
  23. ESTAZOLAM. [Concomitant]
     Active Substance: ESTAZOLAM
     Dates: start: 20180910, end: 20180911
  24. LEUCOGEN (CHINA) [Concomitant]
     Dates: start: 20190125
  25. OMEPRAZOLE SODIUM [Concomitant]
     Active Substance: OMEPRAZOLE SODIUM
     Dates: start: 20181217, end: 20181217
  26. ATEZOLIZUMAB. [Suspect]
     Active Substance: ATEZOLIZUMAB
     Indication: OVARIAN CANCER
     Dosage: DATE OF MOST RECENT DOSE OF BLINDED ATEZOLIZUMAB PRIOR TO SAE ONSET: 21/AUG/2018?ON 20/NOV/2018, REC
     Route: 041
     Dates: start: 20180706
  27. CARBOPLATIN. [Suspect]
     Active Substance: CARBOPLATIN
     Indication: OVARIAN CANCER
     Dosage: DATE OF MOST RECENT DOSE OF CARBOPLATIN OF 600 MG PRIOR TO AE ONSET 21/AUG/2018?AT A DOSE TO ACHIEVE
     Route: 042
     Dates: start: 20180706
  28. PACLITAXEL. [Suspect]
     Active Substance: PACLITAXEL
     Indication: OVARIAN CANCER
     Dosage: DATE OF MOST RECENT DOSE OF PACLITAXEL OF 270 MG PRIOR TO AE ONSET 21/AUG/2018?ON 20/NOV/2018, RECEI
     Route: 042
     Dates: start: 20180706
  29. AMIFOSTINE. [Concomitant]
     Active Substance: AMIFOSTINE
     Dates: start: 20180918, end: 20180918
  30. POTASSIUM CHLORIDE. [Concomitant]
     Active Substance: POTASSIUM CHLORIDE
     Dates: start: 20181211, end: 20181211
  31. POTASSIUM CHLORIDE. [Concomitant]
     Active Substance: POTASSIUM CHLORIDE
     Dates: start: 20190404, end: 20190404
  32. EPIMEDIUM [Concomitant]
     Indication: BONE MARROW FAILURE
     Dates: start: 20180801, end: 20180818
  33. AZASETRON HYDROCHLORIDE [Concomitant]
     Active Substance: AZASETRON HYDROCHLORIDE
     Dates: start: 20181030, end: 20181030
  34. ESTAZOLAM. [Concomitant]
     Active Substance: ESTAZOLAM
     Dates: start: 20181221, end: 20181227
  35. LEUCOGEN (CHINA) [Concomitant]
     Indication: BONE MARROW FAILURE
     Dates: start: 20180912, end: 20181128
  36. AMIKACIN SULFATE. [Concomitant]
     Active Substance: AMIKACIN SULFATE
     Dates: start: 20190102, end: 20190102
  37. LIDOCAINE HYDROCHLORIDE. [Concomitant]
     Active Substance: LIDOCAINE HYDROCHLORIDE
     Dates: start: 20190102, end: 20190114
  38. SPIRONOLACTONE. [Concomitant]
     Active Substance: SPIRONOLACTONE
     Indication: HYPERALDOSTERONISM
     Dates: start: 20180611
  39. DEXAMETHASONE ACETATE [Concomitant]
     Active Substance: DEXAMETHASONE ACETATE
     Route: 048
     Dates: start: 20180820, end: 20180821
  40. LANSOPRAZOLE. [Concomitant]
     Active Substance: LANSOPRAZOLE
     Dates: start: 20180730, end: 20180730
  41. LANSOPRAZOLE. [Concomitant]
     Active Substance: LANSOPRAZOLE
     Dates: start: 20181009, end: 20181009
  42. AZASETRON HYDROCHLORIDE [Concomitant]
     Active Substance: AZASETRON HYDROCHLORIDE
     Dates: start: 20180730, end: 20180730
  43. ESTAZOLAM. [Concomitant]
     Active Substance: ESTAZOLAM
     Dates: start: 20180716, end: 20180730
  44. ESTAZOLAM. [Concomitant]
     Active Substance: ESTAZOLAM
     Dates: start: 20190313, end: 20190313
  45. HYDROCHLOROTHIAZIDE. [Concomitant]
     Active Substance: HYDROCHLOROTHIAZIDE
     Dates: start: 20181225
  46. CLOSTRIDIUM BUTYRICUM [Concomitant]
     Active Substance: CLOSTRIDIUM BUTYRICUM SPORES STRAIN M-55
     Indication: INTESTINAL OBSTRUCTION
     Dates: start: 20181217, end: 20181219
  47. CALCIUM GLUCONATE. [Concomitant]
     Active Substance: CALCIUM GLUCONATE
     Indication: MINERAL SUPPLEMENTATION
     Dates: start: 20190404, end: 20190404
  48. DEXAMETHASONE ACETATE [Concomitant]
     Active Substance: DEXAMETHASONE ACETATE
     Dates: start: 20181029, end: 20181030
  49. LANSOPRAZOLE. [Concomitant]
     Active Substance: LANSOPRAZOLE
     Dates: start: 20190124, end: 20190124
  50. LANSOPRAZOLE. [Concomitant]
     Active Substance: LANSOPRAZOLE
     Dates: start: 20181120, end: 20181120
  51. POTASSIUM CHLORIDE. [Concomitant]
     Active Substance: POTASSIUM CHLORIDE
     Dates: start: 20190125, end: 20190130
  52. JUJUBE [Concomitant]
     Dates: start: 20180823, end: 20180908
  53. EPIMEDIUM [Concomitant]
     Dates: start: 20180823, end: 20180908
  54. AZASETRON HYDROCHLORIDE [Concomitant]
     Active Substance: AZASETRON HYDROCHLORIDE
     Dates: start: 20180821, end: 20180821
  55. AZASETRON HYDROCHLORIDE [Concomitant]
     Active Substance: AZASETRON HYDROCHLORIDE
     Dates: start: 20181120, end: 20181120
  56. ESTAZOLAM. [Concomitant]
     Active Substance: ESTAZOLAM
     Dates: start: 20190220, end: 20190220
  57. LEUCOGEN (CHINA) [Concomitant]
     Dates: start: 20181217, end: 20190123
  58. POVIDONE?IODINE. [Concomitant]
     Active Substance: POVIDONE-IODINE
     Dates: start: 20181008, end: 20181008
  59. FERROUS SUCCINATE [Concomitant]
     Active Substance: FERROUS SUCCINATE
     Dates: start: 20190104, end: 20190114
  60. PARACETAMOL [Concomitant]
     Active Substance: ACETAMINOPHEN
     Indication: UPPER RESPIRATORY TRACT INFECTION
     Dates: start: 20190214, end: 20190217
  61. VITAMIN C [Concomitant]
     Active Substance: ASCORBIC ACID
     Dates: start: 20190407
  62. DEXAMETHASONE ACETATE [Concomitant]
     Active Substance: DEXAMETHASONE ACETATE
     Route: 048
     Dates: start: 20181008, end: 20181009
  63. LANSOPRAZOLE. [Concomitant]
     Active Substance: LANSOPRAZOLE
     Dates: start: 20180918, end: 20180918
  64. LANSOPRAZOLE. [Concomitant]
     Active Substance: LANSOPRAZOLE
     Dates: start: 20190103, end: 20190103
  65. LANSOPRAZOLE. [Concomitant]
     Active Substance: LANSOPRAZOLE
     Dates: start: 20190313, end: 20190313
  66. LANSOPRAZOLE. [Concomitant]
     Active Substance: LANSOPRAZOLE
     Dates: start: 20181211, end: 20181211
  67. AMIFOSTINE. [Concomitant]
     Active Substance: AMIFOSTINE
     Dates: start: 20190220, end: 20190220
  68. POTASSIUM CHLORIDE. [Concomitant]
     Active Substance: POTASSIUM CHLORIDE
     Dates: start: 20180821, end: 20180821
  69. POTASSIUM CHLORIDE. [Concomitant]
     Active Substance: POTASSIUM CHLORIDE
     Dates: start: 20190124, end: 20190125
  70. JUJUBE [Concomitant]
     Indication: BONE MARROW FAILURE
     Dates: start: 20180801, end: 20180818
  71. ESTAZOLAM. [Concomitant]
     Active Substance: ESTAZOLAM
     Dates: start: 20181029, end: 20181030
  72. LIDOCAINE HYDROCHLORIDE. [Concomitant]
     Active Substance: LIDOCAINE HYDROCHLORIDE
     Dates: start: 20181008, end: 20181008
  73. IRBESARTAN. [Concomitant]
     Active Substance: IRBESARTAN
     Dates: start: 20181225, end: 20190526
  74. LANSOPRAZOLE. [Concomitant]
     Active Substance: LANSOPRAZOLE
     Dates: start: 20190220, end: 20190220
  75. AMIFOSTINE. [Concomitant]
     Active Substance: AMIFOSTINE
     Dates: start: 20180730, end: 20180730
  76. AMIFOSTINE. [Concomitant]
     Active Substance: AMIFOSTINE
     Dates: start: 20190313, end: 20190313
  77. AMIFOSTINE. [Concomitant]
     Active Substance: AMIFOSTINE
     Dates: start: 20190403, end: 20190403
  78. POTASSIUM CHLORIDE. [Concomitant]
     Active Substance: POTASSIUM CHLORIDE
     Dates: start: 20190125, end: 20190125
  79. AZASETRON HYDROCHLORIDE [Concomitant]
     Active Substance: AZASETRON HYDROCHLORIDE
     Dates: start: 20181211, end: 20181211
  80. SODIUM CHLORIDE. [Concomitant]
     Active Substance: SODIUM CHLORIDE
     Dates: start: 20180821, end: 20180821
  81. ESTAZOLAM. [Concomitant]
     Active Substance: ESTAZOLAM
     Dates: start: 20190103, end: 20190103
  82. ESTAZOLAM. [Concomitant]
     Active Substance: ESTAZOLAM
     Dates: start: 20190123, end: 20190123
  83. DEXAMETHASONE SODIUM PHOSPHATE. [Concomitant]
     Active Substance: DEXAMETHASONE SODIUM PHOSPHATE
     Indication: MOUTH ULCERATION
     Dates: start: 20180915, end: 20180915
  84. DEXAMETHASONE SODIUM PHOSPHATE. [Concomitant]
     Active Substance: DEXAMETHASONE SODIUM PHOSPHATE
     Dates: start: 20190102, end: 20190105
  85. NIFEDIPINE. [Concomitant]
     Active Substance: NIFEDIPINE
     Dates: start: 20181211, end: 20190526
  86. VITAMIN B6 [Concomitant]
     Active Substance: PYRIDOXINE HYDROCHLORIDE
     Dates: start: 20181217, end: 20181217

REACTIONS (5)
  - Hypertension [Not Recovered/Not Resolved]
  - Ileus [Recovered/Resolved]
  - Hypothyroidism [Recovered/Resolved]
  - Hyperthyroidism [Recovered/Resolved]
  - Liver injury [Recovered/Resolved]

NARRATIVE: CASE EVENT DATE: 20180828
